FAERS Safety Report 12351090 (Version 2)
Quarter: 2016Q2

REPORT INFORMATION
  Report Type: Spontaneous
  Country: FR (occurrence: FR)
  Receive Date: 20160510
  Receipt Date: 20160614
  Transmission Date: 20160815
  Serious: Yes (Hospitalization)
  Sender: FDA-Public Use
  Company Number: FR-PFIZER INC-2016234051

PATIENT
  Age: 46 Year
  Sex: Female
  Weight: 110 kg

DRUGS (5)
  1. XALKORI [Suspect]
     Active Substance: CRIZOTINIB
     Dosage: 250 MG, 2X/DAY
     Dates: start: 20160307
  2. INNOHEP [Concomitant]
     Active Substance: TINZAPARIN SODIUM
     Indication: PULMONARY EMBOLISM
     Dosage: 08 ML, DAILY (IN SUBCUTANEOUS )
     Route: 058
     Dates: start: 201508
  3. INEXIUM 40 [Concomitant]
     Dosage: UNK UNK, DAILY
     Route: 048
     Dates: start: 201508
  4. XALKORI [Suspect]
     Active Substance: CRIZOTINIB
     Indication: LUNG ADENOCARCINOMA
     Dosage: 250 MG, 2X/DAY
     Dates: start: 20160206, end: 20160212
  5. XALKORI [Suspect]
     Active Substance: CRIZOTINIB
     Dosage: 200 MG, 2X/DAY
     Dates: start: 20160217

REACTIONS (3)
  - Face oedema [Recovered/Resolved]
  - Dyspnoea [Recovered/Resolved]
  - Product use issue [Unknown]

NARRATIVE: CASE EVENT DATE: 20160210
